FAERS Safety Report 10180087 (Version 1)
Quarter: 2014Q2

REPORT INFORMATION
  Report Type: Spontaneous
  Country: DE (occurrence: None)
  Receive Date: 20140515
  Receipt Date: 20140515
  Transmission Date: 20141212
  Serious: Yes (Other)
  Sender: FDA-Public Use
  Company Number: 2014-2323

PATIENT
  Sex: 0

DRUGS (2)
  1. DYSPORT [Suspect]
     Indication: MUSCLE SPASTICITY
     Dosage: 100-2300 UNITS ( 1 IN 1 CYCLE (S))
  2. BACLOFEN [Concomitant]

REACTIONS (7)
  - Sepsis [None]
  - Convulsion [None]
  - Eyelid ptosis [None]
  - Oedema [None]
  - Muscular weakness [None]
  - Musculoskeletal disorder [None]
  - Overdose [None]
